FAERS Safety Report 9172217 (Version 1)
Quarter: 2013Q1

REPORT INFORMATION
  Report Type: Other
  Country: GB (occurrence: GB)
  Receive Date: 20130319
  Receipt Date: 20130319
  Transmission Date: 20140127
  Serious: Yes (Other)
  Sender: FDA-Public Use
  Company Number: GB-WATSON-2013-04128

PATIENT
  Age: 48 Year
  Sex: Female
  Weight: 92 kg

DRUGS (4)
  1. SUMATRIPTAN SUCCINATE (UNKNOWN) [Suspect]
     Indication: MIGRAINE
     Dosage: 1 DF DOSAGE FORM
     Route: 048
     Dates: start: 20130218, end: 20130218
  2. CYCLOSPORINE (UNKNOWN) [Suspect]
     Indication: ECZEMA
     Dosage: 200 MG TWICE UNKNOWN
     Route: 048
     Dates: start: 20121219
  3. NEXIUM                             /01479302/ [Concomitant]
     Indication: PRODUCT USED FOR UNKNOWN INDICATION
     Dosage: UNKNOWN
     Route: 065
  4. ELLESTE-SOLO [Concomitant]
     Indication: PRODUCT USED FOR UNKNOWN INDICATION
     Dosage: UNKNOWN
     Route: 065

REACTIONS (4)
  - Hypersensitivity [Recovered/Resolved]
  - Rash [Recovered/Resolved]
  - Chest discomfort [Recovered/Resolved]
  - Dyspnoea [Recovered/Resolved]
